FAERS Safety Report 11482913 (Version 2)
Quarter: 2015Q3

REPORT INFORMATION
  Report Type: Spontaneous
  Country: US (occurrence: US)
  Receive Date: 20150903
  Receipt Date: 20150903
  Transmission Date: 20151125
  Serious: No
  Sender: FDA-Public Use
  Company Number: US-ELI_LILLY_AND_COMPANY-US201108003962

PATIENT
  Sex: Female
  Weight: 87.98 kg

DRUGS (6)
  1. CYMBALTA [Suspect]
     Active Substance: DULOXETINE HYDROCHLORIDE
     Indication: SOCIAL PHOBIA
     Dosage: 60 MG, UNK
  2. CYMBALTA [Suspect]
     Active Substance: DULOXETINE HYDROCHLORIDE
     Dosage: 20 MG, UNK
  3. CYMBALTA [Suspect]
     Active Substance: DULOXETINE HYDROCHLORIDE
     Dosage: 40 MG, UNK
  4. ZOLOFT                                  /USA/ [Concomitant]
     Dosage: 25 MG, UNKNOWN
  5. GLYBURIDE. [Concomitant]
     Active Substance: GLYBURIDE
  6. METFORMIN [Concomitant]
     Active Substance: METFORMIN HYDROCHLORIDE

REACTIONS (7)
  - Exposure during pregnancy [Recovered/Resolved]
  - Panic reaction [Recovered/Resolved]
  - Anxiety [Recovered/Resolved]
  - Off label use [Recovered/Resolved]
  - Claustrophobia [Recovered/Resolved]
  - Sleep apnoea syndrome [Recovered/Resolved]
  - Drug withdrawal syndrome [Recovered/Resolved]
